FAERS Safety Report 23032378 (Version 1)
Quarter: 2023Q4

REPORT INFORMATION
  Report Type: Spontaneous
  Country: US (occurrence: US)
  Receive Date: 20231005
  Receipt Date: 20231005
  Transmission Date: 20240109
  Serious: Yes (Hospitalization)
  Sender: FDA-Public Use
  Company Number: US-drreddys-LIT/USA/23/0178715

PATIENT
  Age: 64 Year
  Sex: Male

DRUGS (8)
  1. CELECOXIB [Suspect]
     Active Substance: CELECOXIB
     Indication: Trigeminal neuralgia
  2. MORPHINE SULFATE [Suspect]
     Active Substance: MORPHINE SULFATE
     Indication: Trigeminal neuralgia
  3. OXYCODONE HYDROCHLORIDE [Suspect]
     Active Substance: OXYCODONE HYDROCHLORIDE
     Indication: Trigeminal neuralgia
  4. GABAPENTIN [Suspect]
     Active Substance: GABAPENTIN
     Indication: Trigeminal neuralgia
  5. GABAPENTIN [Suspect]
     Active Substance: GABAPENTIN
     Dosage: 300MG IN THE MORNING AND 600MG IN THE EVENING
  6. GABAPENTIN [Suspect]
     Active Substance: GABAPENTIN
     Dosage: 300MG IN THE MORNING AND 600MG IN THE EVENING
  7. TRAMADOL [Suspect]
     Active Substance: TRAMADOL\TRAMADOL HYDROCHLORIDE
     Indication: Trigeminal neuralgia
  8. HYDROMORPHONE [Suspect]
     Active Substance: HYDROMORPHONE
     Indication: Trigeminal neuralgia

REACTIONS (3)
  - Drug ineffective [Unknown]
  - Therapeutic response unexpected [Unknown]
  - Off label use [Unknown]
